FAERS Safety Report 9940110 (Version 1)
Quarter: 2014Q1

REPORT INFORMATION
  Report Type: Report from Study
  Country: US (occurrence: US)
  Receive Date: 20140303
  Receipt Date: 20140303
  Transmission Date: 20141002
  Serious: No
  Sender: FDA-Public Use
  Company Number: US-ABBVIE-13P-163-1037954-00

PATIENT
  Age: 57 Year
  Sex: Female

DRUGS (13)
  1. HUMIRA [Suspect]
     Indication: CROHN^S DISEASE
     Dosage: SECOND LOADING DOSE
     Dates: start: 20130102
  2. CLARITIN [Concomitant]
     Indication: HYPERSENSITIVITY
     Dosage: 10 MG DAILY
  3. LANSOPRAZOLE [Concomitant]
     Indication: GASTROOESOPHAGEAL REFLUX DISEASE
     Dosage: 30 MG DAILY
  4. NORVASC [Concomitant]
     Indication: HYPERTENSION
     Dosage: 5 MG DAILY
  5. NEVACORT [Concomitant]
     Indication: PRODUCT USED FOR UNKNOWN INDICATION
     Dosage: 20 MG DAILY
  6. TRAZODONE [Concomitant]
     Indication: DEPRESSION
     Dosage: 100 MG DAILY
  7. TRAZODONE [Concomitant]
     Indication: INSOMNIA
  8. OXYCODONE [Concomitant]
     Indication: INTERVERTEBRAL DISC DEGENERATION
     Dosage: 10/325 MG EVERY 6 HOURS
  9. EFFEXOR XR [Concomitant]
     Indication: DEPRESSION
     Dosage: 150 MG DAILY
  10. VALIUM [Concomitant]
     Indication: ANXIETY
  11. ATENOLOL [Concomitant]
     Indication: HYPERTENSION
  12. NEURONTIN [Concomitant]
     Indication: BACK PAIN
  13. BUDESONIDE [Concomitant]
     Dosage: 9 MILLIGRAM

REACTIONS (3)
  - Oropharyngeal pain [Not Recovered/Not Resolved]
  - Device malfunction [Not Recovered/Not Resolved]
  - Wrong technique in drug usage process [Not Recovered/Not Resolved]
